FAERS Safety Report 21772496 (Version 1)
Quarter: 2022Q4

REPORT INFORMATION
  Report Type: Spontaneous
  Country: FR (occurrence: FR)
  Receive Date: 20221223
  Receipt Date: 20221223
  Transmission Date: 20230113
  Serious: Yes (Hospitalization)
  Sender: FDA-Public Use
  Company Number: None

PATIENT
  Age: 71 Year
  Sex: Female
  Weight: 68 kg

DRUGS (3)
  1. AMIODARONE [Suspect]
     Active Substance: AMIODARONE
     Indication: Atrial fibrillation
     Route: 065
     Dates: start: 202206, end: 20221025
  2. FLECAINIDE ACETATE [Suspect]
     Active Substance: FLECAINIDE ACETATE
     Indication: Atrial fibrillation
     Dosage: UNIT DOSE : 150 MG, FREQUENCY TIME : 24  HOURS, DURATION : 24 DAYS
     Route: 065
     Dates: start: 20221025, end: 20221118
  3. ELIQUIS [Suspect]
     Active Substance: APIXABAN
     Indication: Thrombosis prophylaxis
     Dosage: UNIT DOSE : 5 MG, FREQUENCY TIME : 12 HOURS
     Route: 065
     Dates: start: 202206, end: 20221118

REACTIONS (2)
  - Interstitial lung disease [Not Recovered/Not Resolved]
  - Antisynthetase syndrome [Not Recovered/Not Resolved]

NARRATIVE: CASE EVENT DATE: 20221122
